FAERS Safety Report 8884039 (Version 1)
Quarter: 2012Q4

REPORT INFORMATION
  Report Type: 
  Country: US (occurrence: US)
  Receive Date: 20121104
  Receipt Date: 20121104
  Transmission Date: 20130627
  Serious: No
  Sender: FDA-Public Use
  Company Number: US-ASTRAZENECA-2012SE80261

PATIENT
  Age: 61 Year

DRUGS (21)
  1. PULMICORT FLEXHALER [Suspect]
     Dosage: 180 MCG/ 2 PUFF, BID
     Route: 055
  2. NEXIUM [Suspect]
     Route: 048
  3. LISINOPRIL [Suspect]
     Route: 048
  4. OMEPRAZOLE [Suspect]
     Route: 048
  5. MULTIPLE VITAMIN [Concomitant]
  6. OYSTER SHELL+D3 [Concomitant]
  7. ASTELIN [Concomitant]
  8. FISH OIL [Concomitant]
  9. PROVENTIL [Concomitant]
  10. SIMVASTATIN [Concomitant]
  11. TRAMADOL [Concomitant]
  12. NORTRIPTYLINE [Concomitant]
  13. FUROSEMIDE [Concomitant]
  14. CARBIDOPA-LEVODOPA [Concomitant]
  15. MELOXICAM [Concomitant]
  16. LANCETS [Concomitant]
  17. INSULIN SYRINGE NEEDLE LESS [Concomitant]
  18. INSULIN NEEDLES [Concomitant]
  19. RESTORIL [Concomitant]
  20. VICTOZA [Concomitant]
  21. LANTUS SOLASTAR [Concomitant]

REACTIONS (4)
  - Pyrexia [Unknown]
  - Nausea [Unknown]
  - Type 2 diabetes mellitus [Unknown]
  - Restless legs syndrome [Unknown]
